FAERS Safety Report 20687061 (Version 2)
Quarter: 2022Q2

REPORT INFORMATION
  Report Type: Spontaneous
  Country: JP (occurrence: JP)
  Receive Date: 20220407
  Receipt Date: 20220420
  Transmission Date: 20220721
  Serious: Yes (Other)
  Sender: FDA-Public Use
  Company Number: JP-Eisai-202112308_LEN-EC_P_1

PATIENT
  Sex: Female

DRUGS (4)
  1. LENVIMA [Suspect]
     Active Substance: LENVATINIB
     Indication: Endometrial cancer
     Route: 048
     Dates: start: 20220127, end: 202202
  2. LENVIMA [Suspect]
     Active Substance: LENVATINIB
     Dosage: DOSE DECREASED BY ONE LEVEL (DOSE AND FREQUENCY UNKNOWN)
     Route: 048
     Dates: start: 202203, end: 2022
  3. LENVIMA [Suspect]
     Active Substance: LENVATINIB
     Route: 048
     Dates: start: 2022
  4. KEYTRUDA [Suspect]
     Active Substance: PEMBROLIZUMAB
     Indication: Endometrial cancer
     Route: 041
     Dates: start: 20220127

REACTIONS (4)
  - Cataract [Unknown]
  - Hypertension [Recovering/Resolving]
  - Pain in extremity [Recovering/Resolving]
  - Hypothyroidism [Recovering/Resolving]

NARRATIVE: CASE EVENT DATE: 20220201
